FAERS Safety Report 21757610 (Version 1)
Quarter: 2022Q4

REPORT INFORMATION
  Report Type: Spontaneous
  Country: US (occurrence: None)
  Receive Date: 20221221
  Receipt Date: 20221221
  Transmission Date: 20230113
  Serious: No
  Sender: FDA-Public Use
  Company Number: US-ROCHE-3185890

PATIENT
  Age: 50 Year
  Sex: Female

DRUGS (1)
  1. GAVRETO [Suspect]
     Active Substance: PRALSETINIB
     Indication: Thyroid cancer
     Route: 048
     Dates: start: 20220913

REACTIONS (4)
  - Head discomfort [Unknown]
  - Discomfort [Unknown]
  - Epistaxis [Unknown]
  - Paraesthesia [Unknown]
